FAERS Safety Report 7892516 (Version 6)
Quarter: 2014Q3

REPORT INFORMATION
  Report Type: Spontaneous
  Country: US (occurrence: US)
  Receive Date: 20110311
  Receipt Date: 20140724
  Transmission Date: 20150326
  Serious: Yes (Hospitalization, Other)
  Sender: FDA-Public Use
  Company Number: US-009507513-2010SP062558

PATIENT
  Sex: Female
  Weight: 88.45 kg

DRUGS (1)
  1. NUVARING [Suspect]
     Active Substance: ETHINYL ESTRADIOL\ETONOGESTREL
     Indication: CONTRACEPTION
     Dosage: UNK
     Dates: end: 20081126

REACTIONS (14)
  - Heart rate irregular [Unknown]
  - Blood triglycerides increased [Not Recovered/Not Resolved]
  - Migraine [Unknown]
  - Deep vein thrombosis [Unknown]
  - Blood cholesterol increased [Not Recovered/Not Resolved]
  - Pulmonary embolism [Unknown]
  - Road traffic accident [Unknown]
  - Insulin-requiring type 2 diabetes mellitus [Not Recovered/Not Resolved]
  - Hypercoagulation [Unknown]
  - Abdominal pain [Unknown]
  - Muscle strain [Unknown]
  - Left ventricular dysfunction [Unknown]
  - Hyperlipidaemia [Not Recovered/Not Resolved]
  - Cholelithiasis [Unknown]

NARRATIVE: CASE EVENT DATE: 2008
